FAERS Safety Report 9771477 (Version 2)
Quarter: 2013Q4

REPORT INFORMATION
  Report Type: Spontaneous
  Country: FI (occurrence: FI)
  Receive Date: 20131219
  Receipt Date: 20131223
  Transmission Date: 20140711
  Serious: Yes (Other)
  Sender: FDA-Public Use
  Company Number: FI-ROCHE-1321991

PATIENT
  Sex: Female

DRUGS (7)
  1. XELODA [Suspect]
     Indication: COLON CANCER
     Route: 065
     Dates: start: 20130805
  2. XELODA [Suspect]
     Route: 065
     Dates: start: 20130903, end: 20130923
  3. XELODA [Suspect]
     Route: 065
     Dates: start: 20130924, end: 20131014
  4. XELODA [Suspect]
     Route: 065
     Dates: start: 20131015, end: 20131104
  5. XELODA [Suspect]
     Route: 065
     Dates: start: 20131118
  6. PRIMPERAN (FINLAND) [Concomitant]
     Route: 065
  7. IMOCUR [Concomitant]
     Route: 065

REACTIONS (3)
  - Deep vein thrombosis [Recovered/Resolved]
  - Cerebral haemorrhage [Recovered/Resolved]
  - Amyloidosis [Recovered/Resolved]
